FAERS Safety Report 23146885 (Version 1)
Quarter: 2023Q4

REPORT INFORMATION
  Report Type: Spontaneous
  Country: US (occurrence: US)
  Receive Date: 20231106
  Receipt Date: 20231106
  Transmission Date: 20240109
  Serious: Yes (Hospitalization)
  Sender: FDA-Public Use
  Company Number: US-NOVITIUMPHARMA-2023USNVP01916

PATIENT
  Age: 66 Year
  Sex: Female

DRUGS (1)
  1. LIDOCAINE HYDROCHLORIDE [Suspect]
     Active Substance: DEXTROSE MONOHYDRATE\EPINEPHRINE\EPINEPHRINE BITARTRATE\LIDOCAINE\LIDOCAINE HYDROCHLORIDE\LIDOCAINE
     Indication: Cancer pain
     Dosage: DOSES RANGING FROM 1 TO 2 MG PER KG PER HOUR
     Route: 042

REACTIONS (2)
  - Nausea [Unknown]
  - Chest pain [Unknown]
